FAERS Safety Report 8132376-6 (Version None)
Quarter: 2012Q1

REPORT INFORMATION
  Report Type: 
  Country: None (occurrence: None)
  Receive Date: 20120213
  Receipt Date: 20120201
  Transmission Date: 20120608
  Serious: Yes (Hospitalization)
  Sender: FDA-Public Use
  Company Number: US-ELI_LILLY_AND_COMPANY-US201202001089

PATIENT
  Sex: Female

DRUGS (12)
  1. FORTEO [Suspect]
     Indication: OSTEOPOROSIS
     Dosage: 20 UG, QD
     Route: 065
  2. ASPIRIN [Concomitant]
  3. CALCITONIN SALMON [Concomitant]
     Route: 045
  4. IRON [Concomitant]
  5. AMBIEN [Concomitant]
  6. PREDNISONE TAB [Concomitant]
  7. FLEXERIL [Concomitant]
  8. LISINOPRIL [Concomitant]
  9. OXYCODONE HCL [Concomitant]
  10. COREG [Concomitant]
  11. FOLIC ACID [Concomitant]
  12. GABAPENTIN [Concomitant]

REACTIONS (1)
  - SPINAL COMPRESSION FRACTURE [None]
